FAERS Safety Report 7874763-7 (Version None)
Quarter: 2011Q3

REPORT INFORMATION
  Report Type: 
  Country: None (occurrence: None)
  Receive Date: 20110929
  Receipt Date: 20110707
  Transmission Date: 20111222
  Serious: Yes (Hospitalization)
  Sender: FDA-Public Use
  Company Number: 1000022032

PATIENT
  Age: 44 Year
  Sex: Male

DRUGS (11)
  1. OMEPRAZOLE [Concomitant]
  2. INSULIN (INSULIN) (INSULIN) [Concomitant]
  3. REMERON [Concomitant]
  4. REMERON [Concomitant]
  5. TRICOR [Concomitant]
  6. ATIVAN [Concomitant]
  7. CAMPRAL [Suspect]
     Indication: ALCOHOL ABUSE
     Dosage: 666 MG TID (666 MG, 3 IN 1 D), ORAL
     Route: 048
  8. LITHIUM CARBONATE [Concomitant]
  9. LISINOPRIL [Concomitant]
  10. METFORMIN HCL [Concomitant]
  11. NORVASC [Concomitant]

REACTIONS (4)
  - EXFOLIATIVE RASH [None]
  - RENAL FAILURE [None]
  - DYSKINESIA [None]
  - DEHYDRATION [None]
